FAERS Safety Report 5527264-5 (Version None)
Quarter: 2007Q4

REPORT INFORMATION
  Report Type: 
  Country: None (occurrence: None)
  Receive Date: 20071128
  Receipt Date: 20071119
  Transmission Date: 20080405
  Serious: Yes (Hospitalization)
  Sender: FDA-Public Use
  Company Number: A0690858A

PATIENT
  Age: 80 Year
  Sex: Female

DRUGS (1)
  1. AVANDIA [Suspect]
     Indication: DRUG USE FOR UNKNOWN INDICATION
     Route: 048
     Dates: start: 20070727, end: 20071017

REACTIONS (2)
  - LARYNGEAL OEDEMA [None]
  - OBSTRUCTIVE AIRWAYS DISORDER [None]
